FAERS Safety Report 20812056 (Version 2)
Quarter: 2022Q2

REPORT INFORMATION
  Report Type: Report from Study
  Country: CA (occurrence: CA)
  Receive Date: 20220511
  Receipt Date: 20220513
  Transmission Date: 20220720
  Serious: No
  Sender: FDA-Public Use
  Company Number: CA-ABBVIE-22K-028-4383542-00

PATIENT
  Sex: Female

DRUGS (1)
  1. SKYRIZI [Suspect]
     Active Substance: RISANKIZUMAB-RZAA
     Indication: Psoriasis
     Dosage: 0, WEEK 4 AND EVERY 12 WEEKS AFTER
     Route: 058
     Dates: start: 20220331

REACTIONS (2)
  - Rib fracture [Unknown]
  - Pain [Unknown]

NARRATIVE: CASE EVENT DATE: 20220101
